FAERS Safety Report 5573879-8 (Version None)
Quarter: 2007Q4

REPORT INFORMATION
  Report Type: 
  Country: None (occurrence: None)
  Receive Date: 20071226
  Receipt Date: 20071218
  Transmission Date: 20080405
  Serious: Yes (Hospitalization)
  Sender: FDA-Public Use
  Company Number: DE-ROXANE LABORATORIES, INC-2007-DE-07430GD

PATIENT

DRUGS (2)
  1. PREDNISONE [Suspect]
  2. PREDNISOLONE [Suspect]

REACTIONS (1)
  - SKIN REACTION [None]
